FAERS Safety Report 7554054-4 (Version None)
Quarter: 2011Q2

REPORT INFORMATION
  Report Type: 
  Country: None (occurrence: None)
  Receive Date: 20110617
  Receipt Date: 20110607
  Transmission Date: 20111010
  Serious: Yes (Disabling, Other)
  Sender: FDA-Public Use
  Company Number: US-ENDO PHARMACEUTICALS INC.-PERC20100052

PATIENT
  Age: 48 Year
  Sex: Female

DRUGS (3)
  1. PERCOCET [Suspect]
     Indication: SINUS DISORDER
     Dosage: 3 TABLETS
     Route: 048
     Dates: start: 20090901, end: 20110301
  2. PERCOCET [Suspect]
     Indication: FACIAL PAIN
  3. SINGULAIR [Suspect]

REACTIONS (7)
  - OXYGEN CONSUMPTION INCREASED [None]
  - RESPIRATORY ARREST [None]
  - BEDRIDDEN [None]
  - COUGH [None]
  - DRUG DEPENDENCE [None]
  - NASAL CONGESTION [None]
  - DYSPNOEA [None]
